FAERS Safety Report 9557989 (Version 2)
Quarter: 2013Q4

REPORT INFORMATION
  Report Type: Spontaneous
  Country: US (occurrence: US)
  Receive Date: 20130926
  Receipt Date: 20131011
  Transmission Date: 20140711
  Serious: Yes (Other)
  Sender: FDA-Public Use
  Company Number: US-BAYER-2013-116211

PATIENT
  Age: 72 Year
  Sex: Male

DRUGS (2)
  1. NEXAVAR [Suspect]
     Indication: HEPATIC CANCER
     Dosage: 400 MG, BID (2 BID)
     Route: 048
     Dates: start: 20130912, end: 20130926
  2. NEXAVAR [Suspect]
     Indication: HEPATIC CANCER
     Dosage: 1 DF, QD X 1 WEEK
     Dates: start: 20131001

REACTIONS (4)
  - Chest discomfort [Recovered/Resolved]
  - Diarrhoea [Recovered/Resolved]
  - Abdominal pain [Recovered/Resolved]
  - Headache [None]
